FAERS Safety Report 18444903 (Version 8)
Quarter: 2023Q4

REPORT INFORMATION
  Report Type: Report from Study
  Country: JP (occurrence: JP)
  Receive Date: 20201030
  Receipt Date: 20231207
  Transmission Date: 20240109
  Serious: Yes (Hospitalization, Other)
  Sender: FDA-Public Use
  Company Number: JP-TAKEDA-2020TJP023012AA

PATIENT
  Age: 66 Year
  Sex: Male
  Weight: 69 kg

DRUGS (41)
  1. LEUPROLIDE ACETATE [Suspect]
     Active Substance: LEUPROLIDE ACETATE
     Indication: Bulbospinal muscular atrophy congenital
     Dosage: 11.25 MILLIGRAM, EVERY 3 MONTHS?1ST INJECTION
     Route: 058
     Dates: start: 20170912
  2. LEUPROLIDE ACETATE [Suspect]
     Active Substance: LEUPROLIDE ACETATE
     Dosage: 11.25 MILLIGRAM, Q3MONTHS?2ND INJECTION
     Route: 058
     Dates: start: 20171221, end: 20171221
  3. LEUPROLIDE ACETATE [Suspect]
     Active Substance: LEUPROLIDE ACETATE
     Dosage: 11TH INJECTION
     Route: 058
     Dates: start: 20200311, end: 20200311
  4. LEUPROLIDE ACETATE [Suspect]
     Active Substance: LEUPROLIDE ACETATE
     Dosage: 12TH INJECTION
     Route: 058
     Dates: start: 20200603, end: 20200603
  5. LEUPROLIDE ACETATE [Suspect]
     Active Substance: LEUPROLIDE ACETATE
     Dosage: 13TH INJECTION
     Route: 058
     Dates: start: 20200826, end: 20200826
  6. LEUPROLIDE ACETATE [Suspect]
     Active Substance: LEUPROLIDE ACETATE
     Dosage: 14TH INJECTION
     Route: 058
     Dates: start: 20201108, end: 20201108
  7. LEUPROLIDE ACETATE [Suspect]
     Active Substance: LEUPROLIDE ACETATE
     Dosage: 15TH INJECTION
     Route: 058
     Dates: start: 20210210, end: 20210210
  8. LEUPROLIDE ACETATE [Suspect]
     Active Substance: LEUPROLIDE ACETATE
     Dosage: 16TH INJECTION
     Route: 058
     Dates: start: 20210512, end: 20210512
  9. LEUPROLIDE ACETATE [Suspect]
     Active Substance: LEUPROLIDE ACETATE
     Dosage: 17TH INJECTION
     Route: 058
     Dates: start: 20230607, end: 20230607
  10. LEUPROLIDE ACETATE [Suspect]
     Active Substance: LEUPROLIDE ACETATE
     Dosage: 18TH INJECTION
     Route: 058
     Dates: start: 20230830, end: 20230830
  11. LEUPROLIDE ACETATE [Suspect]
     Active Substance: LEUPROLIDE ACETATE
     Dosage: 3RD INJECTION
     Route: 058
     Dates: start: 20180327, end: 20180327
  12. LEUPROLIDE ACETATE [Suspect]
     Active Substance: LEUPROLIDE ACETATE
     Dosage: 4TH INJECTION
     Route: 058
     Dates: start: 20180703, end: 20180703
  13. LEUPROLIDE ACETATE [Suspect]
     Active Substance: LEUPROLIDE ACETATE
     Dosage: 5TH INJECTION
     Route: 058
     Dates: start: 20181009, end: 20181009
  14. LEUPROLIDE ACETATE [Suspect]
     Active Substance: LEUPROLIDE ACETATE
     Dosage: 6TH INJECTION
     Route: 058
     Dates: start: 20190116, end: 20190116
  15. LEUPROLIDE ACETATE [Suspect]
     Active Substance: LEUPROLIDE ACETATE
     Dosage: 7TH INJECTION
     Route: 058
     Dates: start: 20190410, end: 20190410
  16. LEUPROLIDE ACETATE [Suspect]
     Active Substance: LEUPROLIDE ACETATE
     Dosage: 8TH INJECTION
     Route: 058
     Dates: start: 20190703, end: 20190703
  17. LEUPROLIDE ACETATE [Suspect]
     Active Substance: LEUPROLIDE ACETATE
     Dosage: 9TH INJECTION
     Route: 058
     Dates: start: 20190925, end: 20190925
  18. LEUPROLIDE ACETATE [Suspect]
     Active Substance: LEUPROLIDE ACETATE
     Dosage: 10TH INJECTION
     Route: 058
     Dates: start: 20191218, end: 20191218
  19. LEUPROLIDE ACETATE [Suspect]
     Active Substance: LEUPROLIDE ACETATE
     Route: 058
     Dates: end: 20220413
  20. SHAKUYAKUKANZOTO [Concomitant]
     Active Substance: HERBALS
     Indication: Product used for unknown indication
     Dosage: 2.5 GRAM
     Route: 065
     Dates: start: 20191218
  21. METHYLCOBALAMIN [Concomitant]
     Active Substance: METHYLCOBALAMIN
     Indication: Neuropathy peripheral
     Dosage: 3 MILLIGRAM
     Route: 065
  22. .ALPHA.-TOCOPHEROL ACETATE [Concomitant]
     Active Substance: .ALPHA.-TOCOPHEROL ACETATE
     Indication: Peripheral vascular disorder
     Dosage: 150 MILLIGRAM
     Route: 065
  23. MAGNESIUM OXIDE [Concomitant]
     Active Substance: MAGNESIUM OXIDE
     Indication: Constipation
     Dosage: 990 MILLIGRAM
     Route: 065
  24. SHAKUYAKUKANZOTO [Concomitant]
     Active Substance: HERBALS
     Indication: Muscle spasms
     Dosage: 2 GRAM
     Route: 065
     Dates: end: 20191217
  25. SHAKUYAKUKANZOTO [Concomitant]
     Active Substance: HERBALS
     Indication: Muscle spasms
     Dosage: 2.5 GRAM
     Route: 065
     Dates: start: 20191218
  26. BEZAFIBRATE [Concomitant]
     Active Substance: BEZAFIBRATE
     Indication: Product used for unknown indication
     Dosage: 400 MILLIGRAM
     Route: 065
  27. BROMHEXINE HYDROCHLORIDE [Concomitant]
     Active Substance: BROMHEXINE HYDROCHLORIDE
     Indication: Bronchitis chronic
     Dosage: 12 MILLIGRAM
     Route: 065
  28. SENNOSIDES A AND B [Concomitant]
     Active Substance: SENNOSIDES A AND B
     Indication: Constipation
     Dosage: 24 MILLIGRAM
     Route: 065
  29. BROTIZOLAM [Concomitant]
     Active Substance: BROTIZOLAM
     Indication: Insomnia
     Dosage: 0.25 MILLIGRAM
     Route: 065
     Dates: end: 20210803
  30. BROTIZOLAM [Concomitant]
     Active Substance: BROTIZOLAM
     Indication: Insomnia
     Dosage: 0.5 MILLIGRAM
     Route: 065
     Dates: start: 20210804
  31. KETOPROFEN [Concomitant]
     Active Substance: KETOPROFEN
     Indication: Periarthritis
     Dosage: UNK
     Route: 065
     Dates: end: 20181009
  32. KETOPROFEN [Concomitant]
     Active Substance: KETOPROFEN
     Indication: Periarthritis
     Dosage: UNK
     Route: 065
     Dates: end: 20181009
  33. LOXOPROFEN SODIUM [Concomitant]
     Active Substance: LOXOPROFEN SODIUM
     Indication: Spinal osteoarthritis
     Dosage: 180 MILLIGRAM
     Route: 065
     Dates: start: 20180308, end: 20180314
  34. LOXOPROFEN SODIUM [Concomitant]
     Active Substance: LOXOPROFEN SODIUM
     Indication: Spinal osteoarthritis
     Dosage: 180 MILLIGRAM
     Route: 065
     Dates: start: 20190123, end: 20190326
  35. REBAMIPIDE [Concomitant]
     Active Substance: REBAMIPIDE
     Indication: Prophylaxis
     Dosage: 300 MILLIGRAM
     Route: 065
     Dates: start: 20180308, end: 20180314
  36. REBAMIPIDE [Concomitant]
     Active Substance: REBAMIPIDE
     Indication: Prophylaxis
     Dosage: 300 MILLIGRAM
     Route: 065
     Dates: start: 20190123, end: 20190326
  37. FELBINAC [Concomitant]
     Active Substance: FELBINAC
     Indication: Product used for unknown indication
     Dosage: UNK
     Route: 065
     Dates: start: 20190123, end: 20190326
  38. FELBINAC [Concomitant]
     Active Substance: FELBINAC
     Indication: Product used for unknown indication
     Dosage: UNK
     Route: 065
     Dates: start: 20190123, end: 20190326
  39. LOXOPROFEN SODIUM [Concomitant]
     Active Substance: LOXOPROFEN SODIUM
     Indication: Product used for unknown indication
     Dosage: UNK
     Route: 065
     Dates: start: 20190703
  40. XELODA [Suspect]
     Active Substance: CAPECITABINE
     Indication: Colon cancer
     Dosage: UNK
     Route: 065
     Dates: start: 20220610
  41. OXALIPLATIN [Suspect]
     Active Substance: OXALIPLATIN
     Indication: Lung neoplasm malignant
     Dosage: UNK
     Route: 065
     Dates: start: 20220610, end: 20220701

REACTIONS (10)
  - Lung neoplasm malignant [Recovering/Resolving]
  - Lung neoplasm malignant [Recovering/Resolving]
  - Muscular weakness [Recovering/Resolving]
  - Colon cancer [Recovering/Resolving]
  - Nerve injury [Recovering/Resolving]
  - Decreased appetite [Recovered/Resolved]
  - Hyperhidrosis [Recovered/Resolved]
  - Anaphylactic reaction [Recovered/Resolved]
  - Supraventricular tachycardia [Not Recovered/Not Resolved]
  - Iron deficiency anaemia [Not Recovered/Not Resolved]

NARRATIVE: CASE EVENT DATE: 20200221
